FAERS Safety Report 7068100-8 (Version None)
Quarter: 2010Q4

REPORT INFORMATION
  Report Type: 
  Country: None (occurrence: None)
  Receive Date: 20101028
  Receipt Date: 20101015
  Transmission Date: 20110411
  Serious: Yes (Hospitalization)
  Sender: FDA-Public Use
  Company Number: PHHY2010US44708

PATIENT
  Sex: Female

DRUGS (3)
  1. GLEEVEC [Suspect]
     Indication: CHRONIC MYELOID LEUKAEMIA
     Dosage: 300 MG, QD
     Route: 048
     Dates: start: 20100603
  2. GLEEVEC [Suspect]
     Dosage: 300 MG, QD
     Route: 048
     Dates: start: 20100421
  3. SYNTHROID [Concomitant]

REACTIONS (5)
  - DECREASED APPETITE [None]
  - FATIGUE [None]
  - KNEE ARTHROPLASTY [None]
  - NERVOUSNESS [None]
  - TREMOR [None]
